FAERS Safety Report 4548292-2 (Version None)
Quarter: 2005Q1

REPORT INFORMATION
  Report Type: 
  Country: None (occurrence: None)
  Receive Date: 20050110
  Receipt Date: 20041228
  Transmission Date: 20050727
  Serious: Yes (Death)
  Sender: FDA-Public Use
  Company Number: JP-MERCK-0501USA00208

PATIENT
  Age: 70 Year
  Sex: Male

DRUGS (3)
  1. PEPCID [Suspect]
     Route: 041
  2. LIDOCAINE HYDROCHLORIDE [Concomitant]
     Route: 065
  3. [THERAPY UNSPECIFIED] [Concomitant]
     Route: 065

REACTIONS (2)
  - CARDIAC ARREST [None]
  - SUPRAVENTRICULAR EXTRASYSTOLES [None]
